FAERS Safety Report 9331837 (Version 2)
Quarter: 2014Q3

REPORT INFORMATION
  Report Type: Report from Study
  Country: US (occurrence: US)
  Receive Date: 20130605
  Receipt Date: 20140814
  Transmission Date: 20150326
  Serious: No
  Sender: FDA-Public Use
  Company Number: US-ALEXION-A201301197

PATIENT

DRUGS (1)
  1. SOLIRIS [Suspect]
     Active Substance: ECULIZUMAB
     Indication: PAROXYSMAL NOCTURNAL HAEMOGLOBINURIA
     Dosage: UNK
     Route: 042

REACTIONS (9)
  - Malaise [Unknown]
  - Headache [Not Recovered/Not Resolved]
  - Haemoglobinuria [Unknown]
  - Migraine [Unknown]
  - Myalgia [Unknown]
  - Social avoidant behaviour [Unknown]
  - Haemolysis [Unknown]
  - Drug dose omission [Unknown]
  - Chromaturia [Not Recovered/Not Resolved]

NARRATIVE: CASE EVENT DATE: 20130516
